FAERS Safety Report 6872653-X (Version None)
Quarter: 2010Q3

REPORT INFORMATION
  Report Type: 
  Country: None (occurrence: None)
  Receive Date: 20100723
  Receipt Date: 20081014
  Transmission Date: 20110219
  Serious: No
  Sender: FDA-Public Use
  Company Number: US-PFIZER INC-2008086256

PATIENT
  Sex: Female
  Weight: 141.81 kg

DRUGS (6)
  1. CHANTIX [Suspect]
     Indication: SMOKING CESSATION THERAPY
     Route: 048
     Dates: start: 20081001
  2. PRILOSEC [Concomitant]
  3. ZANTAC [Concomitant]
  4. ZOLOFT [Concomitant]
  5. AMBIEN [Concomitant]
  6. SOMA [Concomitant]

REACTIONS (2)
  - DRUG INEFFECTIVE [None]
  - INCORRECT DRUG DOSAGE FORM ADMINISTERED [None]
